FAERS Safety Report 6295009-X (Version None)
Quarter: 2009Q3

REPORT INFORMATION
  Report Type: 
  Country: None (occurrence: None)
  Receive Date: 20090803
  Receipt Date: 20090721
  Transmission Date: 20100115
  Serious: Yes (Hospitalization, Other)
  Sender: FDA-Public Use
  Company Number: DE-SOLVAY-00309003962

PATIENT
  Sex: Female
  Weight: 73.1 kg

DRUGS (1)
  1. CREON [Suspect]
     Indication: PANCREATECTOMY
     Dosage: DAILY DOSE:  UNKNOWN, AS USED: 25.000IE, FREQUENCY: AS NEEDED
     Route: 048
     Dates: start: 20080108

REACTIONS (3)
  - OVARIAN FIBROMA [None]
  - POSTOPERATIVE HERNIA [None]
  - UTERINE LEIOMYOMA [None]
